FAERS Safety Report 7980140-0 (Version None)
Quarter: 2011Q4

REPORT INFORMATION
  Report Type: 
  Country: None (occurrence: None)
  Receive Date: 20111214
  Receipt Date: 20111201
  Transmission Date: 20120403
  Serious: Yes (Other)
  Sender: FDA-Public Use
  Company Number: US-AMGEN-USASP2011060212

PATIENT
  Age: 72 Year
  Sex: Female

DRUGS (2)
  1. ENBREL [Suspect]
     Indication: RHEUMATOID ARTHRITIS
     Dosage: 50 MG, QWK
     Dates: start: 20110925, end: 20111129
  2. ENBREL [Suspect]
     Indication: ANKYLOSING SPONDYLITIS
     Dosage: UNK

REACTIONS (7)
  - NEUROPATHY PERIPHERAL [None]
  - THROAT LESION [None]
  - DYSPHONIA [None]
  - INFECTION [None]
  - HYPERSENSITIVITY [None]
  - COUGH [None]
  - PAIN IN EXTREMITY [None]
